FAERS Safety Report 16632283 (Version 1)
Quarter: 2019Q3

REPORT INFORMATION
  Report Type: Spontaneous
  Country: US (occurrence: US)
  Receive Date: 20190725
  Receipt Date: 20190725
  Transmission Date: 20191004
  Serious: No
  Sender: FDA-Public Use
  Company Number: US-ABBVIE-19S-163-2722991-00

PATIENT
  Age: 60 Year
  Sex: Female
  Weight: 114.41 kg

DRUGS (3)
  1. SYNTHROID [Suspect]
     Active Substance: LEVOTHYROXINE SODIUM
     Indication: BLOOD THYROID STIMULATING HORMONE ABNORMAL
     Route: 048
     Dates: start: 2000
  2. PROVENTIL [Concomitant]
     Active Substance: ALBUTEROL
     Indication: ASTHMA
     Dosage: PRN
  3. VITAMIN D [Concomitant]
     Active Substance: VITAMIN D NOS
     Indication: VITAMIN SUPPLEMENTATION

REACTIONS (3)
  - Product quality issue [Not Recovered/Not Resolved]
  - Asthma [Not Recovered/Not Resolved]
  - Headache [Recovered/Resolved]

NARRATIVE: CASE EVENT DATE: 20190312
